FAERS Safety Report 24328190 (Version 1)
Quarter: 2024Q3

REPORT INFORMATION
  Report Type: Spontaneous
  Country: JP (occurrence: None)
  Receive Date: 20240917
  Receipt Date: 20240917
  Transmission Date: 20241016
  Serious: Yes (Other)
  Sender: ASTRAZENECA
  Company Number: 2024A208929

PATIENT
  Age: 82 Year
  Sex: Male

DRUGS (2)
  1. ONDEXXYA [Suspect]
     Active Substance: ANDEXANET ALFA
     Indication: Subdural haematoma
     Dosage: DOSE UNKNOWN
     Route: 042
  2. RIVAROXABAN [Concomitant]
     Active Substance: RIVAROXABAN
     Indication: Atrial fibrillation
     Dosage: DOSE UNKNOWN
     Route: 065

REACTIONS (4)
  - Cerebral artery embolism [Unknown]
  - Subdural haematoma [Unknown]
  - Ventricular tachycardia [Recovering/Resolving]
  - Hypokalaemia [Unknown]
